FAERS Safety Report 20547693 (Version 2)
Quarter: 2022Q1

REPORT INFORMATION
  Report Type: Report from Study
  Country: US (occurrence: US)
  Receive Date: 20220303
  Receipt Date: 20220315
  Transmission Date: 20220423
  Serious: Yes (Hospitalization)
  Sender: FDA-Public Use
  Company Number: US-BAYER-2022A016295

PATIENT
  Age: 69 Year
  Sex: Female
  Weight: 69.388 kg

DRUGS (6)
  1. ADEMPAS [Suspect]
     Active Substance: RIOCIGUAT
     Indication: Pulmonary arterial hypertension
     Dosage: UNK
     Dates: start: 20180912
  2. ADEMPAS [Suspect]
     Active Substance: RIOCIGUAT
     Indication: Pulmonary arterial hypertension
     Dosage: 2.5 MG, TID
     Route: 048
  3. ADEMPAS [Suspect]
     Active Substance: RIOCIGUAT
     Indication: Pulmonary arterial hypertension
     Dosage: 2.5 MG, TID
     Route: 048
  4. TYVASO [Suspect]
     Active Substance: TREPROSTINIL
     Dosage: UNK
     Dates: end: 202202
  5. BOSENTAN [Concomitant]
     Active Substance: BOSENTAN
     Dosage: UNK
  6. COUMADIN [Concomitant]
     Active Substance: WARFARIN SODIUM
     Dosage: UNK

REACTIONS (10)
  - Oedema peripheral [None]
  - Localised oedema [None]
  - Hypotension [None]
  - Heart rate decreased [None]
  - Peripheral swelling [None]
  - Abdominal distension [None]
  - Cough [Not Recovered/Not Resolved]
  - Throat irritation [None]
  - Post-tussive vomiting [None]
  - Vomiting [None]

NARRATIVE: CASE EVENT DATE: 20220101
